FAERS Safety Report 18071294 (Version 7)
Quarter: 2020Q3

REPORT INFORMATION
  Report Type: Spontaneous
  Country: GB (occurrence: GB)
  Receive Date: 20200727
  Receipt Date: 20200905
  Transmission Date: 20201103
  Serious: Yes (Life-Threatening, Hospitalization, Other)
  Sender: FDA-Public Use
  Company Number: GB-AUROBINDO-AUR-APL-2020-036527

PATIENT
  Age: 32 Year
  Sex: Male

DRUGS (3)
  1. MODAFINIL. [Suspect]
     Active Substance: MODAFINIL
     Indication: PRODUCT USED FOR UNKNOWN INDICATION
     Dosage: UNK (ESTIMATED QUANTITY OF DRUG WAS MORE THAN 600MG;HE
     Route: 065
  2. METHYLPHENIDATE. [Suspect]
     Active Substance: METHYLPHENIDATE
     Indication: PRODUCT USED FOR UNKNOWN INDICATION
     Dosage: UNK (ESTIMATED QUANTITY OF LESS THAN 200MG)
     Route: 065
  3. D?MANNOSE [DIETARY SUPPLEMENT] [Suspect]
     Active Substance: DIETARY SUPPLEMENT
     Indication: URINARY TRACT INFECTION
     Dosage: UNK
     Route: 065

REACTIONS (18)
  - Loss of consciousness [Recovered/Resolved]
  - Hypovolaemia [Recovered/Resolved]
  - Hyponatraemia [Recovered/Resolved]
  - Pneumonia aspiration [Recovered/Resolved]
  - Amnesia [Recovered/Resolved]
  - Hypovolaemic shock [Unknown]
  - Hypertonia [Recovered/Resolved]
  - Intentional product use issue [Recovered/Resolved]
  - Cognitive disorder [Recovered/Resolved]
  - Overdose [Recovered/Resolved]
  - White blood cell count increased [Recovered/Resolved]
  - Coma scale abnormal [Unknown]
  - Vomiting [Recovered/Resolved]
  - Hypoosmolar state [Recovered/Resolved]
  - Urine sodium increased [Recovered/Resolved]
  - Intracranial pressure increased [Unknown]
  - Brain oedema [Recovered/Resolved]
  - Ecchymosis [Recovered/Resolved]
